FAERS Safety Report 4980231-2 (Version None)
Quarter: 2006Q2

REPORT INFORMATION
  Report Type: 
  Country: None (occurrence: None)
  Receive Date: 20060424
  Receipt Date: 20060410
  Transmission Date: 20061013
  Serious: Yes (Other)
  Sender: FDA-Public Use
  Company Number: JP-JNJFOC-20060402744

PATIENT
  Age: 54 Year
  Sex: Female

DRUGS (4)
  1. DUROTEP [Suspect]
     Indication: CANCER PAIN
     Route: 062
  2. MAINTENANCE MEDIUM (4) [Concomitant]
     Route: 065
  3. THIAMINE MONOPHOSPHATE DISULFIDE-B6-B12 COMBINED DRUG [Concomitant]
     Route: 065
  4. METOCLOPRAMIDE [Concomitant]
     Route: 065

REACTIONS (4)
  - ALANINE AMINOTRANSFERASE INCREASED [None]
  - ASPARTATE AMINOTRANSFERASE INCREASED [None]
  - INTENTIONAL DRUG MISUSE [None]
  - JAUNDICE CHOLESTATIC [None]
